FAERS Safety Report 20458656 (Version 1)
Quarter: 2022Q1

REPORT INFORMATION
  Report Type: Spontaneous
  Country: US (occurrence: US)
  Receive Date: 20220211
  Receipt Date: 20220211
  Transmission Date: 20220423
  Serious: Yes (Other)
  Sender: FDA-Public Use
  Company Number: US-SANOFI-00957490

PATIENT
  Sex: Male

DRUGS (4)
  1. LANTUS SOLOSTAR [Suspect]
     Active Substance: INSULIN GLARGINE
     Indication: Diabetes mellitus
  2. CARVEDILOL [Concomitant]
     Active Substance: CARVEDILOL
  3. LINAGLIPTIN [Concomitant]
     Active Substance: LINAGLIPTIN
  4. LOSARTAN [Concomitant]
     Active Substance: LOSARTAN

REACTIONS (6)
  - Diabetes mellitus [Recovering/Resolving]
  - Renal impairment [Recovering/Resolving]
  - Hypertension [Unknown]
  - Blood pressure increased [Recovering/Resolving]
  - Fall [Unknown]
  - Head injury [Unknown]
